FAERS Safety Report 25132941 (Version 1)
Quarter: 2025Q1

REPORT INFORMATION
  Report Type: Spontaneous
  Country: US (occurrence: US)
  Receive Date: 20250328
  Receipt Date: 20250328
  Transmission Date: 20250409
  Serious: Yes (Other)
  Sender: ASTELLAS
  Company Number: US-ASTELLAS-2025-AER-016203

PATIENT
  Sex: Female

DRUGS (2)
  1. TARCEVA [Suspect]
     Active Substance: ERLOTINIB HYDROCHLORIDE
     Indication: Lung neoplasm malignant
     Route: 050
  2. TAGRISSO [Suspect]
     Active Substance: OSIMERTINIB
     Indication: Lung neoplasm malignant
     Route: 050
     Dates: start: 2017

REACTIONS (7)
  - Syncope [Unknown]
  - COVID-19 [Unknown]
  - Fall [Unknown]
  - Pain [Unknown]
  - Fatigue [Unknown]
  - Decreased appetite [Unknown]
  - Depression [Unknown]
